FAERS Safety Report 14916104 (Version 1)
Quarter: 2018Q2

REPORT INFORMATION
  Report Type: Spontaneous
  Country: US (occurrence: US)
  Receive Date: 20180518
  Receipt Date: 20180518
  Transmission Date: 20180711
  Serious: No
  Sender: FDA-Public Use
  Company Number: US-GLAXOSMITHKLINE-US2018086755

PATIENT
  Age: 83 Year
  Sex: Male

DRUGS (8)
  1. MYRBETRIQ [Concomitant]
     Active Substance: MIRABEGRON
  2. ANORO ELLIPTA [Suspect]
     Active Substance: UMECLIDINIUM BROMIDE\VILANTEROL TRIFENATATE
     Indication: PRODUCT USED FOR UNKNOWN INDICATION
     Dosage: UNK
     Dates: start: 20180510
  3. DONEPEZIL. [Concomitant]
     Active Substance: DONEPEZIL
  4. LEVOTHYROXINE. [Concomitant]
     Active Substance: LEVOTHYROXINE
  5. MEMANTINE. [Concomitant]
     Active Substance: MEMANTINE
  6. FOLATE [Concomitant]
     Active Substance: FOLATE SODIUM
  7. QUETIAPINE. [Concomitant]
     Active Substance: QUETIAPINE
  8. ZOLOFT [Concomitant]
     Active Substance: SERTRALINE HYDROCHLORIDE

REACTIONS (1)
  - Cough [Not Recovered/Not Resolved]

NARRATIVE: CASE EVENT DATE: 201805
